FAERS Safety Report 5303887-3 (Version None)
Quarter: 2007Q1

REPORT INFORMATION
  Report Type: 
  Country: None (occurrence: None)
  Receive Date: 20070201
  Receipt Date: 20061127
  Transmission Date: 20070707
  Serious: No
  Sender: FDA-Public Use
  Company Number: 2006PV025862

PATIENT
  Age: 70 Year
  Sex: Male
  Weight: 68.9467 kg

DRUGS (6)
  1. BYETTA [Suspect]
     Indication: DIABETES MELLITUS NON-INSULIN-DEPENDENT
     Dosage: SEE IMAGE
     Route: 058
     Dates: start: 20060824, end: 20060922
  2. BYETTA [Suspect]
     Indication: DIABETES MELLITUS NON-INSULIN-DEPENDENT
     Dosage: SEE IMAGE
     Route: 058
     Dates: start: 20060923
  3. LANTUS [Concomitant]
  4. AVANDIA [Concomitant]
  5. NOVOLOG [Concomitant]
  6. LANTUS [Concomitant]

REACTIONS (8)
  - ANOREXIA [None]
  - BLOOD GLUCOSE INCREASED [None]
  - DYSGEUSIA [None]
  - NAUSEA [None]
  - RHINITIS [None]
  - RHINORRHOEA [None]
  - SNEEZING [None]
  - WEIGHT DECREASED [None]
